FAERS Safety Report 19022411 (Version 1)
Quarter: 2021Q1

REPORT INFORMATION
  Report Type: Spontaneous
  Country: CN (occurrence: CN)
  Receive Date: 20210318
  Receipt Date: 20210318
  Transmission Date: 20210420
  Serious: Yes (Hospitalization, Disabling)
  Sender: FDA-Public Use
  Company Number: CN-JIANGSU HENGRUI MEDICINE CO., LTD.-2108131

PATIENT
  Age: 23 Year
  Sex: Female
  Weight: 60 kg

DRUGS (5)
  1. PROPOFOL. [Suspect]
     Active Substance: PROPOFOL
     Route: 042
     Dates: start: 20210208, end: 20210208
  2. CISATRACURIUM BESYLATE INJECTION USP, 10 MG/5 ML (2 MG/ML) AND 200 MG/ [Suspect]
     Active Substance: CISATRACURIUM BESYLATE
     Indication: HYPOTONIA
     Route: 042
     Dates: start: 20210208, end: 20210208
  3. SUFENTANIL CITRATE. [Concomitant]
     Active Substance: SUFENTANIL CITRATE
     Route: 042
     Dates: start: 20210208, end: 20210208
  4. SODIUM CHLORIDE. [Concomitant]
     Active Substance: SODIUM CHLORIDE
     Route: 042
     Dates: start: 20210208, end: 20210208
  5. MIDAZOLAM. [Concomitant]
     Active Substance: MIDAZOLAM
     Route: 042
     Dates: start: 20210208, end: 20210208

REACTIONS (4)
  - Dyspnoea [Recovering/Resolving]
  - Acute pulmonary oedema [Recovering/Resolving]
  - Pneumothorax [Recovering/Resolving]
  - Respiratory failure [Recovering/Resolving]

NARRATIVE: CASE EVENT DATE: 20210208
